FAERS Safety Report 8502310-5 (Version None)
Quarter: 2012Q3

REPORT INFORMATION
  Report Type: 
  Country: None (occurrence: None)
  Receive Date: 20120711
  Receipt Date: 20120518
  Transmission Date: 20120928
  Serious: No
  Sender: FDA-Public Use
  Company Number: US-COVIDIEN/TYCO HEALTHCARE/MALLINCKRODT-T201201913

PATIENT
  Sex: Female

DRUGS (9)
  1. OXYCODONE HCL [Suspect]
     Indication: BREAKTHROUGH PAIN
     Dosage: 1-2 TABS TID PRN
     Route: 048
     Dates: start: 20110901, end: 20120507
  2. KLOR-CON [Concomitant]
     Indication: SUPPLEMENTATION THERAPY
  3. AVINZA [Concomitant]
     Indication: PAIN
     Dosage: UNK
  4. ASPIRIN [Concomitant]
     Indication: PROPHYLAXIS
     Dosage: UNK
  5. FLURAZEPAM [Concomitant]
     Indication: INSOMNIA
  6. PREDNISONE [Concomitant]
     Indication: RHEUMATOID ARTHRITIS
     Dosage: UNK
  7. LEVOTHYROXINE SODIUM [Concomitant]
     Dosage: UNK
  8. FUROSEMIDE [Concomitant]
  9. LANSOPRAZOLE [Concomitant]
     Dosage: UNK

REACTIONS (2)
  - SUDDEN ONSET OF SLEEP [None]
  - FATIGUE [None]
